FAERS Safety Report 10370945 (Version 1)
Quarter: 2014Q3

REPORT INFORMATION
  Report Type: Spontaneous
  Country: US (occurrence: None)
  Receive Date: 20140807
  Receipt Date: 20140807
  Transmission Date: 20150326
  Serious: Yes (Hospitalization)
  Sender: FDA-Public Use
  Company Number: None

PATIENT
  Age: 52 Year
  Sex: Female
  Weight: 68.04 kg

DRUGS (5)
  1. ESOMEPRAZOLE [Concomitant]
     Active Substance: ESOMEPRAZOLE
  2. CYCLOPHOSPHAMIDE. [Concomitant]
     Active Substance: CYCLOPHOSPHAMIDE
  3. DEXAMETHASONE. [Concomitant]
     Active Substance: DEXAMETHASONE
  4. VELCADE [Suspect]
     Active Substance: BORTEZOMIB
     Indication: PLASMA CELL MYELOMA
     Dosage: BORTEZOMIB, DAYS 1,4,8 AND 11, SUBCUTANEOUS
     Route: 058
     Dates: start: 20140715, end: 20140715
  5. VALACYCLOVIR [Concomitant]
     Active Substance: VALACYCLOVIR HYDROCHLORIDE

REACTIONS (2)
  - Hypoaesthesia [None]
  - Pain in jaw [None]

NARRATIVE: CASE EVENT DATE: 20140715
